FAERS Safety Report 5663346-5 (Version None)
Quarter: 2008Q1

REPORT INFORMATION
  Report Type: 
  Country: None (occurrence: None)
  Receive Date: 20080313
  Receipt Date: 20080306
  Transmission Date: 20080703
  Serious: Yes (Hospitalization)
  Sender: FDA-Public Use
  Company Number: US-ELI_LILLY_AND_COMPANY-US200803001586

PATIENT
  Sex: Male
  Weight: 90.249 kg

DRUGS (7)
  1. BYETTA [Suspect]
     Dosage: 5 UG, 2/D
     Route: 058
     Dates: start: 20050601, end: 20050701
  2. BYETTA [Suspect]
     Dosage: 10 UG, 2/D
     Route: 058
     Dates: start: 20050701, end: 20071001
  3. GLUCOPHAGE [Concomitant]
     Dosage: 500 MG, 4/D
     Route: 048
  4. AMARYL [Concomitant]
     Dosage: 2 MG, EACH EVENING
     Route: 048
  5. AMARYL [Concomitant]
     Dosage: 4 MG, EACH EVENING
     Route: 048
  6. NORVASC [Concomitant]
     Indication: BLOOD PRESSURE
  7. ATACAND [Concomitant]
     Indication: BLOOD PRESSURE

REACTIONS (5)
  - GASTROOESOPHAGEAL REFLUX DISEASE [None]
  - INGUINAL HERNIA [None]
  - NAUSEA [None]
  - UMBILICAL HERNIA [None]
  - VOMITING [None]
